FAERS Safety Report 5921342-4 (Version None)
Quarter: 2008Q4

REPORT INFORMATION
  Report Type: 
  Country: None (occurrence: None)
  Receive Date: 20081014
  Receipt Date: 20080930
  Transmission Date: 20090506
  Serious: Yes (Hospitalization)
  Sender: FDA-Public Use
  Company Number: 2008BI016307

PATIENT
  Age: 39 Year
  Sex: Female

DRUGS (2)
  1. AVONEX [Suspect]
     Indication: RELAPSING-REMITTING MULTIPLE SCLEROSIS
     Dosage: 30 UG;QW; IM
     Route: 030
     Dates: start: 20080201
  2. .. [Concomitant]

REACTIONS (2)
  - FALL [None]
  - LIGAMENT RUPTURE [None]
